FAERS Safety Report 11948048 (Version 2)
Quarter: 2016Q1

REPORT INFORMATION
  Report Type: Spontaneous
  Country: JP (occurrence: JP)
  Receive Date: 20160125
  Receipt Date: 20160210
  Transmission Date: 20160526
  Serious: Yes (Hospitalization)
  Sender: FDA-Public Use
  Company Number: JP-IGI LABORATORIES, INC.-1046890

PATIENT
  Age: 64 Year
  Sex: Male

DRUGS (6)
  1. PACLITAXEL. [Concomitant]
     Active Substance: PACLITAXEL
  2. SEROTONE [Concomitant]
     Active Substance: AZASETRON HYDROCHLORIDE
     Dates: start: 20150924, end: 20151008
  3. DEXART [Concomitant]
     Active Substance: DEXAMETHASONE SODIUM PHOSPHATE
     Dates: start: 20150924, end: 20151008
  4. ZANTAC [Suspect]
     Active Substance: RANITIDINE HYDROCHLORIDE
     Indication: PREMEDICATION
     Route: 041
     Dates: start: 20150924, end: 20151008
  5. POLARAMINE [Concomitant]
     Active Substance: DEXCHLORPHENIRAMINE MALEATE
     Dates: start: 20150924, end: 20151008
  6. NORMAL SALINE [Concomitant]
     Active Substance: SODIUM CHLORIDE
     Route: 041

REACTIONS (12)
  - Blood pressure decreased [Unknown]
  - Hyperhidrosis [Unknown]
  - Pallor [Unknown]
  - Chest discomfort [Unknown]
  - Flushing [Unknown]
  - Vomiting [Unknown]
  - Chills [Unknown]
  - Feeling abnormal [Unknown]
  - Off label use [Unknown]
  - Dyspnoea [Unknown]
  - Oxygen saturation decreased [Unknown]
  - Nausea [Unknown]

NARRATIVE: CASE EVENT DATE: 20150924
